FAERS Safety Report 16264794 (Version 2)
Quarter: 2019Q2

REPORT INFORMATION
  Report Type: Report from Study
  Country: CA (occurrence: CA)
  Receive Date: 20190502
  Receipt Date: 20190521
  Transmission Date: 20190711
  Serious: Yes (Death, Hospitalization)
  Sender: FDA-Public Use
  Company Number: CA-TAIHO ONCOLOGY  INC-EU-2019-01368

PATIENT
  Age: 64 Year
  Sex: Female
  Weight: 59.3 kg

DRUGS (3)
  1. HYDROMORPHONE [Concomitant]
     Active Substance: HYDROMORPHONE
     Dosage: NI
  2. DEXAMETHASONE. [Concomitant]
     Active Substance: DEXAMETHASONE
     Indication: BONE PAIN
     Dosage: NI
  3. LONSURF [Suspect]
     Active Substance: TIPIRACIL HYDROCHLORIDE\TRIFLURIDINE
     Indication: COLORECTAL CANCER METASTATIC
     Dosage: CURRENT CYCLE 3 STARTED ON 24/AUG/2018
     Route: 048
     Dates: start: 201807, end: 2018

REACTIONS (5)
  - Ascites [Unknown]
  - Colon cancer [Fatal]
  - Pain [Unknown]
  - Disease progression [Unknown]
  - Bone pain [Unknown]

NARRATIVE: CASE EVENT DATE: 2018
